FAERS Safety Report 4692417-5 (Version None)
Quarter: 2005Q2

REPORT INFORMATION
  Report Type: 
  Country: None (occurrence: None)
  Receive Date: 20050615
  Receipt Date: 20050602
  Transmission Date: 20051028
  Serious: Yes (Hospitalization)
  Sender: FDA-Public Use
  Company Number: 2005052699

PATIENT
  Age: 40 Year
  Sex: Male

DRUGS (3)
  1. SOLU-CORTEF [Suspect]
     Indication: TONSILLITIS
     Dosage: 200 MG (200 MG QD) INTRAVENOUS
     Route: 042
     Dates: start: 20041116, end: 20050328
  2. CARBENIN (BETAMIPRON, PANIPENEM) [Suspect]
     Indication: TONSILLITIS
     Dosage: 2 GRAM (2 GRAM, 1 IN 1 D) INTRAVENOUS
     Route: 042
     Dates: start: 20041116, end: 20050328
  3. SODIUM CHLORIDE [Concomitant]

REACTIONS (3)
  - ACUTE TONSILLITIS [None]
  - ANAPHYLACTOID SHOCK [None]
  - LOSS OF CONSCIOUSNESS [None]
